FAERS Safety Report 5210895-X (Version None)
Quarter: 2006Q4

REPORT INFORMATION
  Report Type: 
  Country: None (occurrence: None)
  Receive Date: 20061102
  Receipt Date: 20060531
  Transmission Date: 20070319
  Serious: Yes (Other)
  Sender: FDA-Public Use
  Company Number: 27916

PATIENT
  Age: 59 Year
  Sex: Female
  Weight: 58.9676 kg

DRUGS (11)
  1. METHOTREXATE [Suspect]
     Indication: RHEUMATOID ARTHRITIS
     Dosage: 0.4ML/1 X WEEK
     Dates: start: 19880101
  2. PREDNISONE [Concomitant]
  3. TOPROL-XL [Concomitant]
  4. EVISTA [Concomitant]
  5. VITAMIN B-12 [Concomitant]
  6. PRILOSEC [Concomitant]
  7. FOLIC ACID [Concomitant]
  8. VITAMIN CAP [Concomitant]
  9. CALCIUM SUPPLEMENTS [Concomitant]
  10. XANAX [Concomitant]
  11. VICODIN [Concomitant]

REACTIONS (2)
  - BURNING SENSATION [None]
  - INJECTION SITE REACTION [None]
